FAERS Safety Report 4997547-6 (Version None)
Quarter: 2006Q2

REPORT INFORMATION
  Report Type: 
  Country: None (occurrence: None)
  Receive Date: 20060509
  Receipt Date: 20060330
  Transmission Date: 20061013
  Serious: Yes (Death, Hospitalization)
  Sender: FDA-Public Use
  Company Number: US-MERCK-0603USA04683

PATIENT
  Age: 70 Year
  Sex: Male
  Weight: 89 kg

DRUGS (5)
  1. VIOXX [Suspect]
     Indication: ARTHRITIS
     Route: 048
     Dates: start: 20010917, end: 20031001
  2. LISINOPRIL [Concomitant]
     Route: 065
  3. SIMVASTATIN [Concomitant]
     Route: 065
  4. METFORMIN [Concomitant]
     Route: 065
  5. GLUCOVANCE [Concomitant]
     Route: 065

REACTIONS (26)
  - ABDOMINAL HERNIA [None]
  - ACUTE MYOCARDIAL INFARCTION [None]
  - AORTIC ANEURYSM [None]
  - APHASIA [None]
  - ARTERIOSCLEROSIS [None]
  - BRADYCARDIA [None]
  - CAROTID ARTERY STENOSIS [None]
  - CATARACT [None]
  - CEREBROVASCULAR ACCIDENT [None]
  - CEREBROVASCULAR DISORDER [None]
  - CORONARY ARTERY DISEASE [None]
  - DEATH [None]
  - DIZZINESS [None]
  - DYSPHONIA [None]
  - DYSPNOEA [None]
  - EMBOLISM [None]
  - FOREIGN BODY IN EYE [None]
  - HAEMORRHAGE INTRACRANIAL [None]
  - HEMIPARESIS [None]
  - MENTAL STATUS CHANGES [None]
  - MONOPARESIS [None]
  - NERVOUS SYSTEM DISORDER [None]
  - PYREXIA [None]
  - SICK SINUS SYNDROME [None]
  - SPEECH DISORDER [None]
  - TRANSIENT ISCHAEMIC ATTACK [None]
